FAERS Safety Report 5715439-1 (Version None)
Quarter: 2008Q2

REPORT INFORMATION
  Report Type: 
  Country: None (occurrence: None)
  Receive Date: 20080422
  Receipt Date: 20080410
  Transmission Date: 20081010
  Serious: Yes (Other)
  Sender: FDA-Public Use
  Company Number: 2008BI009460

PATIENT
  Age: 45 Year
  Sex: Female

DRUGS (1)
  1. AVONEX [Suspect]
     Indication: MULTIPLE SCLEROSIS
     Dosage: 30 UG;QW;IM
     Route: 030
     Dates: start: 20000601

REACTIONS (5)
  - ASTHENOPIA [None]
  - BRAIN NEOPLASM BENIGN [None]
  - HEADACHE [None]
  - NEOPLASM PROGRESSION [None]
  - TINNITUS [None]
